FAERS Safety Report 9522321 (Version 2)
Quarter: 2013Q3

REPORT INFORMATION
  Report Type: Spontaneous
  Country: JP (occurrence: JP)
  Receive Date: 20130913
  Receipt Date: 20130930
  Transmission Date: 20140515
  Serious: Yes (Other)
  Sender: FDA-Public Use
  Company Number: JP-NOVOPROD-387071

PATIENT
  Age: 14 Year
  Sex: Male
  Weight: 36 kg

DRUGS (1)
  1. NORDITROPIN FLEXPROCHU 6.7 MG/ML [Suspect]
     Indication: GROWTH HORMONE DEFICIENCY
     Dosage: 0.85 MG, QD
     Route: 058
     Dates: start: 20120201, end: 20130108

REACTIONS (1)
  - Scoliosis [Not Recovered/Not Resolved]
